FAERS Safety Report 16044300 (Version 3)
Quarter: 2019Q2

REPORT INFORMATION
  Report Type: Spontaneous
  Country: US (occurrence: US)
  Receive Date: 20190306
  Receipt Date: 20190507
  Transmission Date: 20190711
  Serious: Yes (Death, Hospitalization, Other)
  Sender: FDA-Public Use
  Company Number: US-GILEAD-2019-0394154

PATIENT
  Age: 42 Year
  Sex: Male
  Weight: 97.3 kg

DRUGS (37)
  1. FLUDARABINE [Suspect]
     Active Substance: FLUDARABINE PHOSPHATE
     Indication: BONE MARROW CONDITIONING REGIMEN
     Dosage: UNK
     Route: 065
     Dates: start: 201901, end: 201901
  2. ETOPOSIDE. [Concomitant]
     Active Substance: ETOPOSIDE
     Dosage: DOSE-REDUCED
     Dates: start: 20190306
  3. DEXAMETHASONE. [Concomitant]
     Active Substance: DEXAMETHASONE
     Dosage: 12 MG, QD
     Route: 048
     Dates: start: 201902
  4. SUBLIMAZE [FENTANYL] [Concomitant]
  5. ETOPOSIDE. [Concomitant]
     Active Substance: ETOPOSIDE
     Dosage: 180 MG, TWICE WEEKLY
     Dates: start: 20190201, end: 20190201
  6. ETOPOSIDE. [Concomitant]
     Active Substance: ETOPOSIDE
     Dosage: 180 MG
     Dates: start: 20190208, end: 20190208
  7. XOPENEX [Concomitant]
     Active Substance: LEVALBUTEROL HYDROCHLORIDE
  8. NOVOLOG [Concomitant]
     Active Substance: INSULIN ASPART
  9. KEPPRA [Concomitant]
     Active Substance: LEVETIRACETAM
  10. BACTRIM DS [Concomitant]
     Active Substance: SULFAMETHOXAZOLE\TRIMETHOPRIM
  11. ETOPOSIDE. [Concomitant]
     Active Substance: ETOPOSIDE
     Dosage: 180 MG, TWICE WEEKLY
     Dates: start: 20190205, end: 20190205
  12. ETOPOSIDE. [Concomitant]
     Active Substance: ETOPOSIDE
     Dosage: DOSE REDUCED, Q1WK
     Dates: start: 20190226, end: 20190226
  13. MAGNESIUM SULFATE. [Concomitant]
     Active Substance: MAGNESIUM SULFATE
  14. VERSED [Concomitant]
     Active Substance: MIDAZOLAM HYDROCHLORIDE
  15. SODIUM CHLORIDE. [Concomitant]
     Active Substance: SODIUM CHLORIDE
  16. MAXIPIME [Concomitant]
     Active Substance: CEFEPIME HYDROCHLORIDE
  17. LEVAQUIN [Concomitant]
     Active Substance: LEVOFLOXACIN
     Dosage: UNK
  18. LEVAQUIN [Concomitant]
     Active Substance: LEVOFLOXACIN
     Dosage: 500 MG
     Route: 048
     Dates: start: 201902
  19. CYCLOPHOSPHAMIDE. [Suspect]
     Active Substance: CYCLOPHOSPHAMIDE
     Indication: BONE MARROW CONDITIONING REGIMEN
     Dosage: UNK
     Route: 065
     Dates: start: 201901, end: 201901
  20. CASPOFUNGIN [Concomitant]
     Active Substance: CASPOFUNGIN
  21. ETOPOSIDE. [Concomitant]
     Active Substance: ETOPOSIDE
     Dosage: 180 MG, TWICE WEEKLY
     Dates: start: 20190211, end: 20190211
  22. DEXAMETHASONE. [Concomitant]
     Active Substance: DEXAMETHASONE
     Dosage: 10 MG, TID (X9 DOSES)
     Route: 042
     Dates: start: 20190121
  23. DEXAMETHASONE. [Concomitant]
     Active Substance: DEXAMETHASONE
     Dosage: 10 MG IV TITRATED DOWN TO 12 MG ORAL BY 19-FEB-2019
     Dates: start: 20190205
  24. NEBUPENT [Concomitant]
     Active Substance: PENTAMIDINE ISETHIONATE
  25. ETOPOSIDE. [Concomitant]
     Active Substance: ETOPOSIDE
     Indication: HAEMOPHAGOCYTIC LYMPHOHISTIOCYTOSIS
     Dosage: 100 MG/M2, QD
     Dates: start: 20181226, end: 20181228
  26. ETOPOSIDE. [Concomitant]
     Active Substance: ETOPOSIDE
     Dosage: 180 MG, Q1WK
     Dates: start: 20190215, end: 20190215
  27. DEXAMETHASONE. [Concomitant]
     Active Substance: DEXAMETHASONE
     Dosage: 5 MG/M2
     Dates: start: 20181229, end: 20190107
  28. DEXAMETHASONE. [Concomitant]
     Active Substance: DEXAMETHASONE
     Dosage: 10 MG, ONCE
     Route: 042
     Dates: start: 20190127, end: 20190127
  29. XYLOCAINE [Concomitant]
     Active Substance: LIDOCAINE HYDROCHLORIDE
  30. PROTONIX [Concomitant]
     Active Substance: PANTOPRAZOLE SODIUM
  31. YESCARTA [Suspect]
     Active Substance: AXICABTAGENE CILOLEUCEL
     Indication: DIFFUSE LARGE B-CELL LYMPHOMA
     Dosage: 2 X 10 6, ONCE
     Route: 042
     Dates: start: 20190114, end: 20190114
  32. ETOPOSIDE. [Concomitant]
     Active Substance: ETOPOSIDE
     Indication: LYMPHOMA
     Dosage: 180 MG, TWICE WEEKLY
     Dates: start: 20190130, end: 20190130
  33. DEXAMETHASONE. [Concomitant]
     Active Substance: DEXAMETHASONE
     Indication: HAEMOPHAGOCYTIC LYMPHOHISTIOCYTOSIS
     Dosage: 10 MG/M2
     Dates: start: 20181226, end: 20181228
  34. DEXAMETHASONE. [Concomitant]
     Active Substance: DEXAMETHASONE
     Dosage: TAPERED AFTER PEMBROLIZUMAB GIVEN
  35. ZOVIRAX [Concomitant]
     Active Substance: ACYCLOVIR
  36. ATROVENT [Concomitant]
     Active Substance: IPRATROPIUM BROMIDE
  37. LOPRESSOR [Concomitant]
     Active Substance: METOPROLOL TARTRATE

REACTIONS (14)
  - Bacterial sepsis [Unknown]
  - Bacteraemia [Unknown]
  - Haemophagocytic lymphohistiocytosis [Not Recovered/Not Resolved]
  - Hyperglycaemia [Not Recovered/Not Resolved]
  - Atrial fibrillation [Recovering/Resolving]
  - Sinus tachycardia [Unknown]
  - B-cell lymphoma [Fatal]
  - Disseminated intravascular coagulation [Unknown]
  - Myopathy [Recovering/Resolving]
  - Drug ineffective [Fatal]
  - B-cell lymphoma recurrent [Not Recovered/Not Resolved]
  - Bacteraemia [Unknown]
  - Cytokine release syndrome [Recovered/Resolved]
  - Infection [Recovering/Resolving]

NARRATIVE: CASE EVENT DATE: 2019
